FAERS Safety Report 25213447 (Version 1)
Quarter: 2025Q2

REPORT INFORMATION
  Report Type: Spontaneous
  Country: US (occurrence: US)
  Receive Date: 20250418
  Receipt Date: 20250418
  Transmission Date: 20250717
  Serious: Yes (Hospitalization, Other)
  Sender: CIPLA
  Company Number: US-MLMSERVICE-20250331-PI462084-00123-2

PATIENT

DRUGS (18)
  1. CARBOPLATIN [Interacting]
     Active Substance: CARBOPLATIN
     Indication: Hormone receptor positive breast cancer
     Route: 065
  2. CARBOPLATIN [Interacting]
     Active Substance: CARBOPLATIN
     Indication: HER2 positive breast cancer
  3. CARBOPLATIN [Interacting]
     Active Substance: CARBOPLATIN
     Indication: Invasive ductal breast carcinoma
  4. DOCETAXEL [Interacting]
     Active Substance: DOCETAXEL
     Indication: Hormone receptor positive breast cancer
     Route: 065
  5. DOCETAXEL [Interacting]
     Active Substance: DOCETAXEL
     Indication: HER2 positive breast cancer
  6. DOCETAXEL [Interacting]
     Active Substance: DOCETAXEL
     Indication: Invasive ductal breast carcinoma
  7. TRASTUZUMAB [Interacting]
     Active Substance: TRASTUZUMAB
     Indication: Hormone receptor positive breast cancer
     Route: 065
  8. TRASTUZUMAB [Interacting]
     Active Substance: TRASTUZUMAB
     Indication: HER2 positive breast cancer
     Route: 065
  9. TRASTUZUMAB [Interacting]
     Active Substance: TRASTUZUMAB
     Indication: Invasive ductal breast carcinoma
  10. PERTUZUMAB [Interacting]
     Active Substance: PERTUZUMAB
     Indication: Hormone receptor positive breast cancer
     Route: 065
  11. PERTUZUMAB [Interacting]
     Active Substance: PERTUZUMAB
     Indication: HER2 positive breast cancer
     Route: 065
  12. PERTUZUMAB [Interacting]
     Active Substance: PERTUZUMAB
     Indication: Invasive ductal breast carcinoma
  13. APREPITANT [Concomitant]
     Active Substance: APREPITANT
     Indication: Premedication
     Route: 065
  14. DEXAMETHASONE [Concomitant]
     Active Substance: DEXAMETHASONE
     Indication: Premedication
     Route: 065
  15. PALONOSETRON [Concomitant]
     Active Substance: PALONOSETRON
     Indication: Premedication
     Route: 065
  16. PEGFILGRASTIM [Concomitant]
     Active Substance: PEGFILGRASTIM
     Indication: Product used for unknown indication
     Route: 065
  17. FAMOTIDINE [Concomitant]
     Active Substance: FAMOTIDINE
     Indication: Premedication
     Route: 065
  18. DIPHENHYDRAMINE [Concomitant]
     Active Substance: DIPHENHYDRAMINE
     Indication: Premedication
     Route: 065

REACTIONS (2)
  - Cystitis haemorrhagic [Recovered/Resolved]
  - Drug interaction [Unknown]
